FAERS Safety Report 25598579 (Version 1)
Quarter: 2025Q3

REPORT INFORMATION
  Report Type: Spontaneous
  Country: US (occurrence: US)
  Receive Date: 20250723
  Receipt Date: 20250723
  Transmission Date: 20251021
  Serious: Yes (Other)
  Sender: JOHNSON AND JOHNSON
  Company Number: US-JNJFOC-20250720991

PATIENT
  Age: 53 Year
  Sex: Female

DRUGS (2)
  1. OPSUMIT [Suspect]
     Active Substance: MACITENTAN
     Indication: Pulmonary arterial hypertension
     Route: 048
     Dates: start: 202302
  2. RIOCIGUAT [Suspect]
     Active Substance: RIOCIGUAT
     Route: 065
     Dates: start: 202302

REACTIONS (1)
  - Heart failure with preserved ejection fraction [Unknown]
